FAERS Safety Report 9555516 (Version 1)
Quarter: 2013Q3

REPORT INFORMATION
  Report Type: Spontaneous
  Country: US (occurrence: None)
  Receive Date: 20130822
  Receipt Date: 20130822
  Transmission Date: 20140515
  Serious: Yes (Other)
  Sender: FDA-Public Use
  Company Number: 1392714

PATIENT
  Age: 78 Year
  Sex: Female
  Weight: 63.7 kg

DRUGS (1)
  1. ATROPINE SULFATE [Suspect]
     Indication: CATHETERISATION CARDIAC
     Dosage: 2 MG , TWICE , INTRAVENOUS BOLUS
     Route: 040
     Dates: start: 20120822

REACTIONS (1)
  - Drug ineffective [None]
